FAERS Safety Report 23644865 (Version 2)
Quarter: 2025Q2

REPORT INFORMATION
  Report Type: Report from Study
  Country: GR (occurrence: GR)
  Receive Date: 20240318
  Receipt Date: 20250613
  Transmission Date: 20250717
  Serious: No
  Sender: SANDOZ
  Company Number: GR-SANDOZ-SDZ2023GR020448

PATIENT
  Age: 13 Year
  Sex: Female

DRUGS (1)
  1. OMNITROPE [Suspect]
     Active Substance: SOMATROPIN
     Indication: Growth hormone deficiency
     Route: 065
     Dates: start: 20230816

REACTIONS (2)
  - Product dose omission issue [Unknown]
  - Device mechanical issue [Unknown]

NARRATIVE: CASE EVENT DATE: 20230816
